FAERS Safety Report 15415641 (Version 1)
Quarter: 2018Q3

REPORT INFORMATION
  Report Type: Report from Study
  Country: None (occurrence: TN)
  Receive Date: 20180922
  Receipt Date: 20180922
  Transmission Date: 20181010
  Serious: Yes (Death, Hospitalization, Disabling, Other)
  Sender: FDA-Public Use
  Company Number: TN-ABBVIE-18K-160-2493031-00

PATIENT
  Sex: Female

DRUGS (3)
  1. HUMIRA [Suspect]
     Active Substance: ADALIMUMAB
     Route: 058
     Dates: start: 20180327, end: 20180706
  2. HUMIRA [Suspect]
     Active Substance: ADALIMUMAB
     Route: 058
     Dates: start: 20180313, end: 20180313
  3. HUMIRA [Suspect]
     Active Substance: ADALIMUMAB
     Indication: CROHN^S DISEASE
     Route: 058
     Dates: start: 20180227, end: 20180227

REACTIONS (16)
  - Traumatic intracranial haemorrhage [Fatal]
  - Syncope [Fatal]
  - Fall [Fatal]
  - Headache [Fatal]
  - Gastrointestinal haemorrhage [Fatal]
  - General physical health deterioration [Fatal]
  - Neuropathy peripheral [Fatal]
  - Head injury [Fatal]
  - Crohn^s disease [Fatal]
  - Blindness [Fatal]
  - Oral fungal infection [Fatal]
  - Weight decreased [Fatal]
  - Gingival bleeding [Fatal]
  - Decreased appetite [Fatal]
  - Mobility decreased [Fatal]
  - Deafness [Fatal]

NARRATIVE: CASE EVENT DATE: 2018
